FAERS Safety Report 6173148-1 (Version None)
Quarter: 2009Q2

REPORT INFORMATION
  Report Type: 
  Country: None (occurrence: None)
  Receive Date: 20090430
  Receipt Date: 20090423
  Transmission Date: 20091009
  Serious: Yes (Other)
  Sender: FDA-Public Use
  Company Number: JP-PFIZER INC-2009204969

PATIENT

DRUGS (2)
  1. ATARAX [Suspect]
     Dosage: UNK
     Route: 048
     Dates: start: 20090101
  2. LENDORMIN [Concomitant]

REACTIONS (3)
  - FACE OEDEMA [None]
  - OROPHARYNGEAL DISCOMFORT [None]
  - PHARYNGEAL OEDEMA [None]
